FAERS Safety Report 9656781 (Version 1)
Quarter: 2013Q4

REPORT INFORMATION
  Report Type: Spontaneous
  Country: GB (occurrence: None)
  Receive Date: 20131028
  Receipt Date: 20131028
  Transmission Date: 20140711
  Serious: Yes (Hospitalization)
  Sender: FDA-Public Use
  Company Number: AUR-APL-2013-09039

PATIENT
  Age: 41 Year
  Sex: Female

DRUGS (6)
  1. RIBAVIRIN [Suspect]
     Indication: HEPATITIS C
     Dosage: ORAL
     Route: 048
     Dates: start: 20130219
  2. INCIVO [Suspect]
     Indication: HEPATITIS C
     Dosage: 2250 MG (750 MG, 3 IN 1 D), ORAL
     Dates: start: 20130219, end: 20130416
  3. PEGINTERFERON ALFA-2A [Suspect]
     Indication: HEPATITIS C
     Route: 058
     Dates: start: 20130219
  4. ANUSOL (ANUSOL / 00117301/) [Concomitant]
  5. METOCLOPRAMIDE (METOCLOPRAMIDE) [Concomitant]
  6. TRAMADOL (TRAMADOL) [Concomitant]

REACTIONS (18)
  - Restless legs syndrome [None]
  - Thirst [None]
  - Skin burning sensation [None]
  - Nausea [None]
  - Blood potassium decreased [None]
  - Blood bilirubin increased [None]
  - Blood magnesium decreased [None]
  - Blood alkaline phosphatase increased [None]
  - Blood albumin decreased [None]
  - Gamma-glutamyltransferase increased [None]
  - Blood count abnormal [None]
  - Aspartate aminotransferase increased [None]
  - Alanine aminotransferase increased [None]
  - Platelet count decreased [None]
  - Epistaxis [None]
  - Anaemia [None]
  - Pruritus [None]
  - Sleep disorder [None]
